FAERS Safety Report 8785807 (Version 1)
Quarter: 2012Q4

REPORT INFORMATION
  Report Type: 
  Country: DE (occurrence: DE)
  Receive Date: 20120914
  Receipt Date: 20120914
  Transmission Date: 20130627
  Serious: Yes (Other)
  Sender: FDA-Public Use
  Company Number: DE-GLAXOSMITHKLINE-B0829921A

PATIENT
  Age: 65 Year
  Sex: Female

DRUGS (1)
  1. NEOTIGASON [Suspect]
     Indication: BASAL CELL CARCINOMA
     Route: 048
     Dates: start: 201110, end: 201208

REACTIONS (1)
  - Retinal detachment [Recovered/Resolved]
